FAERS Safety Report 4318597-9 (Version None)
Quarter: 2004Q1

REPORT INFORMATION
  Report Type: 
  Country: None (occurrence: None)
  Receive Date: 20040315
  Receipt Date: 20040308
  Transmission Date: 20041129
  Serious: Yes (Death, Hospitalization)
  Sender: FDA-Public Use
  Company Number: 200313329GDS

PATIENT
  Age: 67 Year
  Sex: Male
  Weight: 53 kg

DRUGS (13)
  1. AVELOX [Suspect]
     Indication: PNEUMONIA
     Dosage: 400 MG, TOTAL DAILY, INTRAVENOUS
     Route: 042
     Dates: start: 20030217, end: 20030218
  2. EUPHYLLIN [Concomitant]
  3. RESPICUR [Concomitant]
  4. SOLU DECORTIN [Concomitant]
  5. APREDNISLON [Concomitant]
  6. LOVENOX [Concomitant]
  7. SPIRONOCOMP FORTE [Concomitant]
  8. NEXIUM [Concomitant]
  9. BURONIL [Concomitant]
  10. BAMBEC [Concomitant]
  11. MYCOSTATIN [Concomitant]
  12. COMBIVENT [Concomitant]
  13. PULMICORT [Concomitant]

REACTIONS (2)
  - ABDOMINAL DISCOMFORT [None]
  - PYREXIA [None]
